FAERS Safety Report 15156069 (Version 2)
Quarter: 2018Q3

REPORT INFORMATION
  Report Type: Spontaneous
  Country: US (occurrence: US)
  Receive Date: 20180717
  Receipt Date: 20180717
  Transmission Date: 20181010
  Serious: Yes (Hospitalization, Other)
  Sender: FDA-Public Use
  Company Number: PHHY2014US185205

PATIENT
  Age: 53 Year
  Sex: Male

DRUGS (11)
  1. LAMICTAL [Interacting]
     Active Substance: LAMOTRIGINE
     Indication: TEMPORAL LOBE EPILEPSY
     Dosage: 500 MG, BID
     Route: 048
     Dates: start: 199604
  2. LAMICTAL [Interacting]
     Active Substance: LAMOTRIGINE
     Dosage: UNK
     Route: 065
  3. NAPROXEN. [Suspect]
     Active Substance: NAPROXEN
     Indication: PRODUCT USED FOR UNKNOWN INDICATION
     Dosage: UNK, U
     Route: 065
  4. LAMICTAL [Interacting]
     Active Substance: LAMOTRIGINE
     Dosage: 300 MG, QD
     Route: 065
  5. VOLTAREN [Suspect]
     Active Substance: DICLOFENAC SODIUM
     Indication: PRODUCT USED FOR UNKNOWN INDICATION
     Dosage: UNK
     Route: 065
  6. KLONOPIN [Concomitant]
     Active Substance: CLONAZEPAM
     Indication: PRODUCT USED FOR UNKNOWN INDICATION
     Dosage: UNK
     Route: 065
  7. LAMICTAL [Interacting]
     Active Substance: LAMOTRIGINE
     Dosage: 550 MG, QD
     Route: 065
  8. TYLENOL [Interacting]
     Active Substance: ACETAMINOPHEN
     Indication: SLEEP DISORDER
     Dosage: 1000 MG, PRN
     Route: 048
     Dates: start: 200408
  9. TYLENOL PM [Suspect]
     Active Substance: ACETAMINOPHEN\DIPHENHYDRAMINE
     Indication: PRODUCT USED FOR UNKNOWN INDICATION
     Dosage: UNK, U
     Route: 065
  10. LAMICTAL [Interacting]
     Active Substance: LAMOTRIGINE
     Indication: SEIZURE
     Dosage: 25 MG,
     Route: 065
     Dates: start: 2014
  11. LAMICTAL [Interacting]
     Active Substance: LAMOTRIGINE
     Dosage: 100 MG, UNK
     Route: 065

REACTIONS (12)
  - Drug interaction [Recovered/Resolved]
  - Drug ineffective [Recovered/Resolved]
  - Generalised tonic-clonic seizure [Unknown]
  - Peripheral nerve lesion [Unknown]
  - Fatigue [Unknown]
  - Partial seizures [Recovered/Resolved]
  - Upper limb fracture [Recovered/Resolved]
  - Insomnia [Recovered/Resolved]
  - Brain oedema [Unknown]
  - Drug hypersensitivity [Unknown]
  - Fall [Recovered/Resolved]
  - Carpal tunnel syndrome [Unknown]

NARRATIVE: CASE EVENT DATE: 1996
